FAERS Safety Report 24827851 (Version 2)
Quarter: 2025Q1

REPORT INFORMATION
  Report Type: Spontaneous
  Country: US (occurrence: US)
  Receive Date: 20250109
  Receipt Date: 20250316
  Transmission Date: 20250409
  Serious: No
  Sender: JOHNSON AND JOHNSON
  Company Number: US-JNJFOC-20241157165

PATIENT
  Age: 68 Year
  Sex: Female
  Weight: 52.16 kg

DRUGS (1)
  1. DARZALEX FASPRO [Suspect]
     Active Substance: DARATUMUMAB\HYALURONIDASE-FIHJ
     Indication: Plasma cell myeloma
     Route: 065

REACTIONS (3)
  - Product use issue [Unknown]
  - Feeling abnormal [Unknown]
  - Adverse event [Unknown]
